FAERS Safety Report 5159816-9 (Version None)
Quarter: 2006Q4

REPORT INFORMATION
  Report Type: 
  Country: None (occurrence: None)
  Receive Date: 20061129
  Receipt Date: 20060118
  Transmission Date: 20070319
  Serious: No
  Sender: FDA-Public Use
  Company Number: US-GLAXOSMITHKLINE-A0589881A

PATIENT
  Age: 43 Year
  Sex: Male

DRUGS (7)
  1. WELLBUTRIN SR [Suspect]
     Indication: DEPRESSION
     Dosage: 400MG PER DAY
     Route: 048
  2. PROTONIX [Concomitant]
  3. ADVAIR DISKUS 100/50 [Concomitant]
  4. ALBUTEROL [Concomitant]
  5. ASTELIN [Concomitant]
  6. TOPAMAX [Concomitant]
  7. XENICAL [Concomitant]

REACTIONS (1)
  - ERECTILE DYSFUNCTION [None]
